FAERS Safety Report 7165631-7 (Version None)
Quarter: 2010Q4

REPORT INFORMATION
  Report Type: 
  Country: None (occurrence: None)
  Receive Date: 20101215
  Receipt Date: 20100104
  Transmission Date: 20110411
  Serious: Yes (Other)
  Sender: FDA-Public Use
  Company Number: US-AMGEN-KDL382395

PATIENT

DRUGS (1)
  1. ENBREL [Suspect]
     Indication: RHEUMATOID ARTHRITIS
     Dosage: 25 MG, 2 TIMES/WK
     Route: 058

REACTIONS (5)
  - BREAST CANCER IN SITU [None]
  - CYSTITIS [None]
  - KIDNEY INFECTION [None]
  - RHEUMATOID ARTHRITIS [None]
  - SINUSITIS [None]
